FAERS Safety Report 8215737-6 (Version None)
Quarter: 2012Q1

REPORT INFORMATION
  Report Type: 
  Country: None (occurrence: None)
  Receive Date: 20120316
  Receipt Date: 20120308
  Transmission Date: 20120608
  Serious: Yes (Hospitalization)
  Sender: FDA-Public Use
  Company Number: US-BAYER-2011-029558

PATIENT
  Age: 21 Year
  Sex: Female
  Weight: 98 kg

DRUGS (1)
  1. YASMIN [Suspect]
     Indication: CONTRACEPTION
     Dosage: UNK
     Dates: start: 20040601, end: 20061101

REACTIONS (9)
  - PANCREATITIS [None]
  - CHOLECYSTITIS CHRONIC [None]
  - CHOLELITHIASIS [None]
  - GALLBLADDER DISORDER [None]
  - ANXIETY [None]
  - PAIN [None]
  - ABDOMINAL PAIN UPPER [None]
  - PSYCHOLOGICAL TRAUMA [None]
  - EMOTIONAL DISTRESS [None]
